FAERS Safety Report 4787312-7 (Version None)
Quarter: 2005Q3

REPORT INFORMATION
  Report Type: 
  Country: None (occurrence: None)
  Receive Date: 20050926
  Receipt Date: 20050715
  Transmission Date: 20060218
  Serious: No
  Sender: FDA-Public Use
  Company Number: 216148

PATIENT
  Sex: 0

DRUGS (2)
  1. AVASTIN [Suspect]
  2. WARFARIN SODIUM [Concomitant]

REACTIONS (1)
  - LABORATORY TEST ABNORMAL [None]
